FAERS Safety Report 21774431 (Version 12)
Quarter: 2024Q1

REPORT INFORMATION
  Report Type: Spontaneous
  Country: CA (occurrence: CA)
  Receive Date: 20221224
  Receipt Date: 20240103
  Transmission Date: 20240410
  Serious: Yes (Other)
  Sender: FDA-Public Use
  Company Number: CA-CELLTRION INC.-2022CA007383

PATIENT

DRUGS (9)
  1. INFLECTRA [Suspect]
     Active Substance: INFLIXIMAB-DYYB
     Indication: Crohn^s disease
     Dosage: 400 MG, EVERY 7 WEEK
     Route: 042
     Dates: start: 20220609
  2. INFLECTRA [Suspect]
     Active Substance: INFLIXIMAB-DYYB
     Dosage: 400 MG, EVERY 7 WEEK
     Route: 042
     Dates: start: 20220729
  3. INFLECTRA [Suspect]
     Active Substance: INFLIXIMAB-DYYB
     Dosage: 400 MG, EVERY 7 WEEK
     Route: 042
     Dates: start: 20220915
  4. INFLECTRA [Suspect]
     Active Substance: INFLIXIMAB-DYYB
     Dosage: 400 MG, EVERY 7 WEEK
     Route: 042
     Dates: start: 20221103
  5. INFLECTRA [Suspect]
     Active Substance: INFLIXIMAB-DYYB
     Dosage: 400 MG, EVERY 7 WEEK
     Route: 042
     Dates: start: 20221222
  6. INFLECTRA [Suspect]
     Active Substance: INFLIXIMAB-DYYB
     Dosage: 400 MG, Q7 WEEKS
     Route: 042
     Dates: start: 20230209
  7. INFLECTRA [Suspect]
     Active Substance: INFLIXIMAB-DYYB
     Dosage: 400 MG, EVERY 4 WEEKS
     Route: 042
     Dates: start: 20230308
  8. INFLECTRA [Suspect]
     Active Substance: INFLIXIMAB-DYYB
     Dosage: 400 MG, EVERY 4 WEEKS
     Route: 042
     Dates: start: 20230406
  9. INFLECTRA [Suspect]
     Active Substance: INFLIXIMAB-DYYB
     Dosage: 400 MG, EVERY 4 WEEKS
     Route: 042
     Dates: start: 20231130

REACTIONS (13)
  - Sialoadenitis [Unknown]
  - Craniofacial fracture [Unknown]
  - Cellulitis [Unknown]
  - Salmonellosis [Recovering/Resolving]
  - Therapeutic product effect incomplete [Unknown]
  - Eczema [Unknown]
  - Bowel movement irregularity [Unknown]
  - Condition aggravated [Not Recovered/Not Resolved]
  - Bronchitis [Not Recovered/Not Resolved]
  - Laryngitis [Not Recovered/Not Resolved]
  - Herpes zoster [Unknown]
  - Faeces soft [Not Recovered/Not Resolved]
  - Off label use [Unknown]

NARRATIVE: CASE EVENT DATE: 20220101
